FAERS Safety Report 4286265-8 (Version None)
Quarter: 2004Q1

REPORT INFORMATION
  Report Type: 
  Country: None (occurrence: None)
  Receive Date: 20040205
  Receipt Date: 20040205
  Transmission Date: 20041129
  Serious: Yes (Hospitalization)
  Sender: FDA-Public Use
  Company Number: None

PATIENT
  Age: 55 Year
  Sex: Male
  Weight: 87 kg

DRUGS (9)
  1. LITHIUM CARBONATE [Suspect]
     Dosage: 600 MG TID
  2. DIURETIC [Suspect]
  3. BUPROPION HCL [Concomitant]
  4. CELECOXIB [Concomitant]
  5. METOPROLOL [Concomitant]
  6. TEMAZEPAM [Concomitant]
  7. WARFARIN SODIUM [Concomitant]
  8. AUGMENTIN '125' [Concomitant]
  9. ALBUTEROL [Concomitant]

REACTIONS (4)
  - DRUG TOXICITY [None]
  - GAIT DISTURBANCE [None]
  - RENAL FAILURE ACUTE [None]
  - RENAL FAILURE CHRONIC [None]
